FAERS Safety Report 10919152 (Version 1)
Quarter: 2015Q1

REPORT INFORMATION
  Report Type: Other
  Country: GB (occurrence: GB)
  Receive Date: 20150316
  Receipt Date: 20150316
  Transmission Date: 20150721
  Serious: Yes (Other)
  Sender: FDA-Public Use
  Company Number: GB-MYLANLABS-2015M1007023

PATIENT

DRUGS (3)
  1. ROPINIROLE. [Suspect]
     Active Substance: ROPINIROLE
     Dosage: 6 MG, UNK
     Route: 065
  2. RASAGILINE [Suspect]
     Active Substance: RASAGILINE
     Dosage: 1 MG, UNK
     Route: 065
  3. SINEMET CR [Suspect]
     Active Substance: CARBIDOPA\LEVODOPA
     Dosage: 125 MG, QID (500 MILLIGRAM DAILY)
     Route: 065

REACTIONS (7)
  - Abnormal behaviour [Unknown]
  - Prostate cancer [Unknown]
  - Memory impairment [Unknown]
  - Bradyphrenia [Unknown]
  - Hallucination [Unknown]
  - Dysuria [Unknown]
  - Cognitive disorder [Unknown]
